FAERS Safety Report 20658676 (Version 1)
Quarter: 2022Q1

REPORT INFORMATION
  Report Type: Spontaneous
  Country: US (occurrence: US)
  Receive Date: 20220331
  Receipt Date: 20220331
  Transmission Date: 20220423
  Serious: Yes (Other)
  Sender: FDA-Public Use
  Company Number: US-MYLANLABS-2022M1023991

PATIENT
  Sex: Female

DRUGS (6)
  1. CABERGOLINE [Suspect]
     Active Substance: CABERGOLINE
     Indication: Prolactin-producing pituitary tumour
     Dosage: 0.25 MILLIGRAM, QW
     Route: 048
     Dates: start: 2009
  2. CABERGOLINE [Suspect]
     Active Substance: CABERGOLINE
     Dosage: 0.25 MILLIGRAM, BIWEEKLY
     Route: 048
     Dates: end: 2013
  3. CABERGOLINE [Suspect]
     Active Substance: CABERGOLINE
     Dosage: 0.25 MILLIGRAM, QW
     Route: 048
  4. CABERGOLINE [Suspect]
     Active Substance: CABERGOLINE
     Dosage: REDUCED TO 0.25MG EVERY OTHER WEEK AND THERAPY WAS EVENTUALLY DISCONTINUED
     Route: 048
  5. TOPAMAX [Concomitant]
     Active Substance: TOPIRAMATE
     Indication: Headache
     Dosage: UNK
     Route: 065
  6. BOTOX [Concomitant]
     Active Substance: ONABOTULINUMTOXINA
     Indication: Headache
     Dosage: UNK
     Route: 065

REACTIONS (6)
  - Empty sella syndrome [Recovering/Resolving]
  - Hemianopia heteronymous [Recovering/Resolving]
  - Balance disorder [Unknown]
  - Dizziness [Unknown]
  - Anxiety [Unknown]
  - Panic attack [Unknown]
